FAERS Safety Report 10143165 (Version 1)
Quarter: 2014Q2

REPORT INFORMATION
  Report Type: Spontaneous
  Country: US (occurrence: US)
  Receive Date: 20140430
  Receipt Date: 20140430
  Transmission Date: 20141212
  Serious: No
  Sender: FDA-Public Use
  Company Number: US-BAYER-2014-063353

PATIENT
  Age: 80 Year
  Sex: Female
  Weight: 68.93 kg

DRUGS (6)
  1. ALEVE TABLET [Suspect]
     Indication: GROIN PAIN
     Dosage: 1 DF, PRN
     Route: 048
     Dates: start: 20140421
  2. LISINOPRIL [Concomitant]
  3. TOPROL XL [Concomitant]
  4. BAYER ASPIRIN REGIMEN ADULT LOW STRENGTH [Concomitant]
     Indication: ISCHAEMIC HEART DISEASE PROPHYLAXIS
  5. NIASPAN [Concomitant]
  6. LIDODERM [Concomitant]

REACTIONS (1)
  - Drug ineffective [None]
